FAERS Safety Report 6699545-3 (Version None)
Quarter: 2010Q2

REPORT INFORMATION
  Report Type: 
  Country: None (occurrence: None)
  Receive Date: 20100427
  Receipt Date: 20100427
  Transmission Date: 20101027
  Serious: Yes (Other)
  Sender: FDA-Public Use
  Company Number: None

PATIENT
  Age: 42 Year
  Sex: Female
  Weight: 66.2252 kg

DRUGS (8)
  1. COPAXONE [Suspect]
     Indication: MULTIPLE SCLEROSIS
     Dosage: 20 MG INJECTION DAILY SQ
     Route: 058
     Dates: start: 20090320, end: 20100417
  2. ALLEGRA [Concomitant]
  3. NASACORT [Concomitant]
  4. SUDAFED 12 HOUR [Concomitant]
  5. VITAMINS -DAILY MULTIPLE-VITAMIN [Concomitant]
  6. ADDITIONAL B12 [Concomitant]
  7. CALCIUM [Concomitant]
  8. D- [Concomitant]

REACTIONS (3)
  - ALOPECIA [None]
  - DRUG DOSE OMISSION [None]
  - FACIAL WASTING [None]
